FAERS Safety Report 9191224 (Version 1)
Quarter: 2013Q1

REPORT INFORMATION
  Report Type: Spontaneous
  Country: US (occurrence: US)
  Receive Date: 20130326
  Receipt Date: 20130326
  Transmission Date: 20140127
  Serious: No
  Sender: FDA-Public Use
  Company Number: US-ASTRAZENECA-2013SE16456

PATIENT
  Age: 58 Year
  Sex: Female
  Weight: 81.2 kg

DRUGS (4)
  1. NEXIUM [Suspect]
     Indication: GASTROOESOPHAGEAL REFLUX DISEASE
     Route: 048
     Dates: start: 2000, end: 20130213
  2. NEXIUM [Suspect]
     Indication: GASTROOESOPHAGEAL REFLUX DISEASE
     Route: 048
  3. PRILOSEC [Suspect]
     Indication: GASTROOESOPHAGEAL REFLUX DISEASE
     Route: 048
     Dates: start: 1992, end: 2000
  4. SYNTHROID [Concomitant]
     Indication: THYROID DISORDER
     Dosage: 112 MCG
     Dates: start: 2009

REACTIONS (13)
  - Aphagia [Unknown]
  - Fatigue [Unknown]
  - Ventricular extrasystoles [Unknown]
  - Influenza [Unknown]
  - Weight decreased [Unknown]
  - Sleep disorder [Unknown]
  - Dizziness [Unknown]
  - Confusional state [Unknown]
  - Myalgia [Unknown]
  - Headache [Unknown]
  - Malaise [Unknown]
  - Intentional drug misuse [Unknown]
  - Drug ineffective [Unknown]
